FAERS Safety Report 14113744 (Version 1)
Quarter: 2017Q4

REPORT INFORMATION
  Report Type: Spontaneous
  Country: US (occurrence: US)
  Receive Date: 20171023
  Receipt Date: 20171023
  Transmission Date: 20180321
  Serious: Yes (Hospitalization)
  Sender: FDA-Public Use
  Company Number: US-JNJFOC-20171015364

PATIENT
  Sex: Female
  Weight: 74 kg

DRUGS (2)
  1. INFLECTRA [Suspect]
     Active Substance: INFLIXIMAB-DYYB
     Indication: CROHN^S DISEASE
     Dosage: PATIENT HAD 1 COMPLETE INFUSION.
     Route: 042
     Dates: start: 20170627, end: 20170627
  2. REMICADE [Suspect]
     Active Substance: INFLIXIMAB
     Indication: CROHN^S DISEASE
     Route: 042
     Dates: start: 201706

REACTIONS (2)
  - Atrial fibrillation [Recovering/Resolving]
  - Serum sickness [Recovering/Resolving]

NARRATIVE: CASE EVENT DATE: 2017
